FAERS Safety Report 4355743-5 (Version None)
Quarter: 2004Q2

REPORT INFORMATION
  Report Type: 
  Country: None (occurrence: None)
  Receive Date: 20040505
  Receipt Date: 20040422
  Transmission Date: 20050107
  Serious: Yes (Hospitalization)
  Sender: FDA-Public Use
  Company Number: JP-JNJFOC-20040405440

PATIENT
  Age: 73 Year
  Sex: Male

DRUGS (3)
  1. REMICADE [Suspect]
     Indication: RHEUMATOID ARTHRITIS
     Dosage: 3 MG/KG, 1 IN 1 AS NECESSARY, INTRAVENOUS DRIP
     Route: 041
     Dates: start: 20040407, end: 20040407
  2. RHEUMATREX [Concomitant]
  3. DIOVAN [Concomitant]

REACTIONS (7)
  - BLOOD PRESSURE DECREASED [None]
  - DISEASE RECURRENCE [None]
  - FUNGAL INFECTION [None]
  - INFUSION RELATED REACTION [None]
  - PLEURAL EFFUSION [None]
  - PRODUCTIVE COUGH [None]
  - TUBERCULOSIS [None]
